FAERS Safety Report 5973150-6 (Version None)
Quarter: 2008Q4

REPORT INFORMATION
  Report Type: 
  Country: None (occurrence: None)
  Receive Date: 20081201
  Receipt Date: 20081126
  Transmission Date: 20090506
  Serious: Yes (Life-Threatening, Hospitalization)
  Sender: FDA-Public Use
  Company Number: JP-ASTRAZENECA-2008AP09205

PATIENT
  Age: 72 Year
  Sex: Male
  Weight: 52 kg

DRUGS (3)
  1. XYLOCAINE [Suspect]
     Indication: NERVE BLOCK
     Dosage: ADMINISTERED EVERY OTHER WEEK FOR A TOTAL OF THREE TIMES.
     Route: 053
  2. ALCOHOL [Concomitant]
     Indication: NERVE BLOCK
     Dosage: ADMINISTERED EVERY OTHER WEEK FOR A TOTAL OF THREE TIMES.
     Route: 065
  3. DEXAMETHASONE [Concomitant]
     Indication: NERVE BLOCK
     Dosage: ADMINISTERED EVERY OTHER WEEK FOR A TOTAL OF THREE TIMES.
     Route: 065

REACTIONS (6)
  - ACUTE MYOCARDIAL INFARCTION [None]
  - ANAPHYLACTOID REACTION [None]
  - ARRHYTHMIA SUPRAVENTRICULAR [None]
  - BLOOD PRESSURE INCREASED [None]
  - DILATATION VENTRICULAR [None]
  - LOSS OF CONSCIOUSNESS [None]
